FAERS Safety Report 10736506 (Version 1)
Quarter: 2015Q1

REPORT INFORMATION
  Report Type: Spontaneous
  Country: US (occurrence: US)
  Receive Date: 20150126
  Receipt Date: 20150126
  Transmission Date: 20150721
  Serious: No
  Sender: FDA-Public Use
  Company Number: US-ASTRAZENECA-2015SE04343

PATIENT
  Sex: Female

DRUGS (3)
  1. NEXIUM [Suspect]
     Active Substance: ESOMEPRAZOLE MAGNESIUM
     Indication: GASTROOESOPHAGEAL REFLUX DISEASE
     Route: 048
     Dates: start: 2011, end: 20150112
  2. NEXIUM [Suspect]
     Active Substance: ESOMEPRAZOLE MAGNESIUM
     Indication: GASTROOESOPHAGEAL REFLUX DISEASE
     Route: 048
     Dates: start: 201405, end: 201406
  3. NEXIUM [Suspect]
     Active Substance: ESOMEPRAZOLE MAGNESIUM
     Indication: GASTROOESOPHAGEAL REFLUX DISEASE
     Route: 048
     Dates: start: 201405, end: 201406

REACTIONS (17)
  - Intervertebral disc protrusion [Unknown]
  - Exostosis [Unknown]
  - Road traffic accident [Unknown]
  - Nausea [Unknown]
  - Drug ineffective [Unknown]
  - Pain [Unknown]
  - Nerve injury [Unknown]
  - Nasal septum deviation [Unknown]
  - Gout [Unknown]
  - Migraine [Unknown]
  - Physical disability [Unknown]
  - Post-traumatic neck syndrome [Unknown]
  - Peripheral nerve lesion [Unknown]
  - Anxiety [Unknown]
  - Bursitis [Unknown]
  - Gastrooesophageal reflux disease [Unknown]
  - Adverse event [Unknown]

NARRATIVE: CASE EVENT DATE: 2013
